FAERS Safety Report 16076992 (Version 1)
Quarter: 2019Q1

REPORT INFORMATION
  Report Type: Spontaneous
  Country: US (occurrence: US)
  Receive Date: 20190315
  Receipt Date: 20190315
  Transmission Date: 20190418
  Serious: Yes (Other)
  Sender: FDA-Public Use
  Company Number: US-ELI_LILLY_AND_COMPANY-US201903001356

PATIENT
  Sex: Female

DRUGS (1)
  1. HUMULIN R [Suspect]
     Active Substance: INSULIN HUMAN
     Indication: TYPE 1 DIABETES MELLITUS
     Dosage: 250-300 IU, DAILY
     Route: 058

REACTIONS (4)
  - Hepatic failure [Unknown]
  - Rheumatoid arthritis [Not Recovered/Not Resolved]
  - Blood glucose increased [Unknown]
  - Pancreatitis chronic [Not Recovered/Not Resolved]
